FAERS Safety Report 12744538 (Version 1)
Quarter: 2016Q3

REPORT INFORMATION
  Report Type: Spontaneous
  Country: US (occurrence: US)
  Receive Date: 20160914
  Receipt Date: 20160914
  Transmission Date: 20161109
  Serious: No
  Sender: FDA-Public Use
  Company Number: US-JAZZ-2016-US-009580

PATIENT
  Sex: Female

DRUGS (51)
  1. DIOVAN [Concomitant]
     Active Substance: VALSARTAN
  2. BRINTELLIX [Concomitant]
     Active Substance: VORTIOXETINE HYDROBROMIDE
  3. CELEBREX [Concomitant]
     Active Substance: CELECOXIB
  4. CYMBALTA [Concomitant]
     Active Substance: DULOXETINE HYDROCHLORIDE
  5. DYAZIDE [Concomitant]
     Active Substance: HYDROCHLOROTHIAZIDE\TRIAMTERENE
  6. LAMICTAL [Concomitant]
     Active Substance: LAMOTRIGINE
  7. REQUIP [Concomitant]
     Active Substance: ROPINIROLE HYDROCHLORIDE
  8. LEVAQUIN [Concomitant]
     Active Substance: LEVOFLOXACIN
  9. ADDERALL [Concomitant]
     Active Substance: AMPHETAMINE ASPARTATE\AMPHETAMINE SULFATE\DEXTROAMPHETAMINE SACCHARATE\DEXTROAMPHETAMINE SULFATE
  10. IBUPROFEN. [Concomitant]
     Active Substance: IBUPROFEN
  11. CLOBETASOL [Concomitant]
     Active Substance: CLOBETASOL
  12. GABAPENTIN. [Concomitant]
     Active Substance: GABAPENTIN
  13. TOPAMAX [Concomitant]
     Active Substance: TOPIRAMATE
  14. ZOCOR [Concomitant]
     Active Substance: SIMVASTATIN
  15. BROMFED [Concomitant]
     Active Substance: BROMPHENIRAMINE MALEATE\DEXTROMETHORPHAN HYDROBROMIDE\PSEUDOEPHEDRINE HYDROCHLORIDE
  16. TESSALON [Concomitant]
     Active Substance: BENZONATATE
  17. CLONIDINE HCL [Concomitant]
     Active Substance: CLONIDINE HYDROCHLORIDE
  18. ACYCLOVIR. [Concomitant]
     Active Substance: ACYCLOVIR
  19. PROVENTIL HFA [Concomitant]
     Active Substance: ALBUTEROL SULFATE
  20. MUCINEX ER [Concomitant]
  21. LEXAPRO [Concomitant]
     Active Substance: ESCITALOPRAM OXALATE
  22. AMLODIPINE BESYLATE. [Concomitant]
     Active Substance: AMLODIPINE BESYLATE
  23. IRON [Concomitant]
     Active Substance: IRON
  24. PROPRANOLOL ER [Concomitant]
  25. XYREM [Suspect]
     Active Substance: SODIUM OXYBATE
     Indication: NARCOLEPSY
     Dosage: 2.25 G, BID
     Route: 048
     Dates: start: 201106, end: 201109
  26. CRESTOR [Concomitant]
     Active Substance: ROSUVASTATIN CALCIUM
  27. KLOR-CON [Concomitant]
     Active Substance: POTASSIUM CHLORIDE
  28. VALTREX [Concomitant]
     Active Substance: VALACYCLOVIR HYDROCHLORIDE
  29. EXFORGE [Concomitant]
     Active Substance: AMLODIPINE BESYLATE\VALSARTAN
  30. PREDNISOLONE. [Concomitant]
     Active Substance: PREDNISOLONE
  31. DIAZEPAM. [Concomitant]
     Active Substance: DIAZEPAM
  32. ABILIFY [Concomitant]
     Active Substance: ARIPIPRAZOLE
  33. XYREM [Suspect]
     Active Substance: SODIUM OXYBATE
     Indication: CATAPLEXY
     Dosage: DOSE ADJUSTMENTS
     Route: 048
  34. BUMETANIDE. [Concomitant]
     Active Substance: BUMETANIDE
  35. ATIVAN [Concomitant]
     Active Substance: LORAZEPAM
  36. BUTALBITAL COMPOUND [Concomitant]
     Active Substance: ASPIRIN\BUTALBITAL\CAFFEINE
  37. VALSARTAN. [Concomitant]
     Active Substance: VALSARTAN
  38. FLUCONAZOLE. [Concomitant]
     Active Substance: FLUCONAZOLE
  39. AMOXIL [Concomitant]
     Active Substance: AMOXICILLIN
  40. XYREM [Suspect]
     Active Substance: SODIUM OXYBATE
     Dosage: 4 G, BID
     Route: 048
     Dates: start: 201605
  41. AUGMENTIN [Concomitant]
     Active Substance: AMOXICILLIN\CLAVULANATE POTASSIUM
  42. BYETTA [Concomitant]
     Active Substance: EXENATIDE
  43. POTASSIUM ACETATE. [Concomitant]
     Active Substance: POTASSIUM ACETATE
  44. TRAMADOL HCL [Concomitant]
     Active Substance: TRAMADOL HYDROCHLORIDE
  45. MACA [Concomitant]
  46. FLEXERIL [Concomitant]
     Active Substance: CYCLOBENZAPRINE HYDROCHLORIDE
  47. LYRICA [Concomitant]
     Active Substance: PREGABALIN
  48. MELOXICAM. [Concomitant]
     Active Substance: MELOXICAM
  49. SENNOSIDES. [Concomitant]
     Active Substance: SENNOSIDES
  50. PREDNISONE. [Concomitant]
     Active Substance: PREDNISONE
  51. AZITHROMYCIN ANHYDROUS. [Concomitant]
     Active Substance: AZITHROMYCIN ANHYDROUS

REACTIONS (1)
  - Sensation of foreign body [Not Recovered/Not Resolved]
